FAERS Safety Report 4447493-1 (Version None)
Quarter: 2004Q3

REPORT INFORMATION
  Report Type: 
  Country: None (occurrence: None)
  Receive Date: 20040823
  Receipt Date: 20040517
  Transmission Date: 20050211
  Serious: No
  Sender: FDA-Public Use
  Company Number: PHEH2004US05386

PATIENT
  Age: 62 Year
  Sex: Female

DRUGS (7)
  1. ZELNORM [Suspect]
     Indication: IRRITABLE BOWEL SYNDROME
     Dosage: 6 MG BID ORAL
     Route: 048
     Dates: start: 20040510, end: 20040516
  2. AMIODARONE HCL [Concomitant]
  3. ZOCOR [Concomitant]
  4. DIOVAN [Concomitant]
  5. CATAPRES-TTS-1 [Concomitant]
  6. BUSPAR [Concomitant]
  7. ASPIRIN [Concomitant]

REACTIONS (5)
  - ABDOMINAL PAIN [None]
  - FACE OEDEMA [None]
  - FLATULENCE [None]
  - FLUSHING [None]
  - NIGHT SWEATS [None]
